FAERS Safety Report 9604195 (Version 1)
Quarter: 2013Q4

REPORT INFORMATION
  Report Type: Spontaneous
  Country: GR (occurrence: GR)
  Receive Date: 20131008
  Receipt Date: 20131008
  Transmission Date: 20140711
  Serious: No
  Sender: FDA-Public Use
  Company Number: GR-JNJFOC-20130917099

PATIENT
  Sex: Male

DRUGS (1)
  1. STELARA [Suspect]
     Indication: PSORIASIS
     Route: 058
     Dates: start: 20130101

REACTIONS (5)
  - Swelling face [Recovered/Resolved]
  - Vertigo [Recovered/Resolved]
  - Dysphonia [Recovered/Resolved]
  - Tension [Recovered/Resolved]
  - Dizziness [Recovered/Resolved]
